FAERS Safety Report 23874523 (Version 1)
Quarter: 2024Q2

REPORT INFORMATION
  Report Type: Spontaneous
  Country: FR (occurrence: FR)
  Receive Date: 20240520
  Receipt Date: 20240520
  Transmission Date: 20240716
  Serious: Yes (Hospitalization)
  Sender: FDA-Public Use
  Company Number: None

PATIENT
  Age: 54 Year
  Sex: Male

DRUGS (9)
  1. ESOMEPRAZOLE [Suspect]
     Active Substance: ESOMEPRAZOLE
     Indication: Gastrooesophageal reflux disease
     Route: 048
     Dates: start: 2011, end: 20240218
  2. KARDEGIC [Concomitant]
     Active Substance: ASPIRIN DL-LYSINE
     Indication: Product used for unknown indication
     Route: 065
  3. ALPRAZOLAM [Concomitant]
     Active Substance: ALPRAZOLAM
     Indication: Product used for unknown indication
     Route: 065
  4. ATORVASTATIN [Concomitant]
     Active Substance: ATORVASTATIN
     Indication: Product used for unknown indication
     Route: 065
  5. METFORMIN HYDROCHLORIDE [Concomitant]
     Active Substance: METFORMIN HYDROCHLORIDE
     Indication: Product used for unknown indication
     Route: 065
  6. LERCANIDIPINE [Concomitant]
     Active Substance: LERCANIDIPINE
     Indication: Product used for unknown indication
     Dosage: LERCANIDIPINE HYDROCHLORIDE
     Route: 065
  7. BISOPROLOL [Concomitant]
     Active Substance: BISOPROLOL\BISOPROLOL FUMARATE
     Indication: Product used for unknown indication
     Dosage: BISOPROLOL (FUMARATE)
     Route: 065
  8. PERINDOPRIL [Concomitant]
     Active Substance: PERINDOPRIL
     Indication: Product used for unknown indication
     Route: 065
  9. ALDACTAZINE [Concomitant]
     Active Substance: ALTHIAZIDE\SPIRONOLACTONE
     Indication: Product used for unknown indication
     Dosage: 25 MG/15 MG, SCORED TABLET
     Route: 065

REACTIONS (4)
  - Hypocalcaemia [Recovered/Resolved]
  - Hypomagnesaemia [Recovered/Resolved]
  - Hypokalaemia [Recovered/Resolved]
  - Blood phosphorus decreased [Recovered/Resolved]

NARRATIVE: CASE EVENT DATE: 20240216
